FAERS Safety Report 7213646-2 (Version None)
Quarter: 2010Q4

REPORT INFORMATION
  Report Type: 
  Country: None (occurrence: None)
  Receive Date: 20101126
  Receipt Date: 20091203
  Transmission Date: 20110411
  Serious: Yes (Other)
  Sender: FDA-Public Use
  Company Number: WAES 0912USA00848

PATIENT
  Age: 65 Year
  Sex: Male
  Weight: 98.4306 kg

DRUGS (6)
  1. FOSAMAX [Suspect]
     Indication: OSTEOPOROSIS
     Dosage: 10 MG/DAILY/PO
     Route: 048
     Dates: start: 19960819, end: 20000401
  2. FOSAMAX [Suspect]
     Indication: OSTEOPOROSIS
     Dosage: WKY/PO ; 40 MG/PO
     Route: 048
     Dates: start: 20000401, end: 20001101
  3. FOSAMAX [Suspect]
     Indication: OSTEOPOROSIS
     Dosage: WKY/PO ; 40 MG/PO
     Route: 048
     Dates: start: 20000420, end: 20011005
  4. ACTONEL [Suspect]
     Dosage: 35 MG/WKY
     Dates: start: 20001101, end: 20071218
  5. BONIVA [Suspect]
  6. FOLIC ACID [Concomitant]

REACTIONS (26)
  - ABDOMINAL TENDERNESS [None]
  - ARTHROPATHY [None]
  - BLOOD CHOLESTEROL INCREASED [None]
  - BLOOD CREATININE INCREASED [None]
  - BURSA DISORDER [None]
  - CALCIUM DEFICIENCY [None]
  - CHONDROCALCINOSIS [None]
  - CHONDROCALCINOSIS PYROPHOSPHATE [None]
  - DENTAL CARIES [None]
  - EXOSTOSIS [None]
  - FISTULA [None]
  - FLUSHING [None]
  - HELICOBACTER INFECTION [None]
  - HYPERTENSION [None]
  - INCORRECT DOSE ADMINISTERED [None]
  - INFLAMMATORY BOWEL DISEASE [None]
  - MUSCULOSKELETAL DISCOMFORT [None]
  - ORAL TORUS [None]
  - OSTEONECROSIS [None]
  - OSTEOPENIA [None]
  - PAIN [None]
  - PHARYNGEAL DISORDER [None]
  - PNEUMONIA [None]
  - RHEUMATOID ARTHRITIS [None]
  - TOOTH ABSCESS [None]
  - TOOTH FRACTURE [None]
